FAERS Safety Report 15606422 (Version 1)
Quarter: 2018Q4

REPORT INFORMATION
  Report Type: Spontaneous
  Country: US (occurrence: US)
  Receive Date: 20181106
  Receipt Date: 20181106
  Transmission Date: 20190205
  Serious: Yes (Other)
  Sender: FDA-Public Use
  Company Number: None

PATIENT
  Age: 83 Year
  Sex: Male
  Weight: 83.91 kg

DRUGS (33)
  1. DEXILANT [Concomitant]
     Active Substance: DEXLANSOPRAZOLE
  2. PRAVASTATIN SODIUM. [Concomitant]
     Active Substance: PRAVASTATIN SODIUM
  3. ALFUZOSIN ER [Concomitant]
  4. SINEMET [Concomitant]
     Active Substance: CARBIDOPA\LEVODOPA
  5. GLIPICIDE XL [Concomitant]
  6. ROLAIDS [Concomitant]
     Active Substance: CALCIUM CARBONATE\MAGNESIUM HYDROXIDE
  7. METOPROLOL TARTRATE. [Concomitant]
     Active Substance: METOPROLOL TARTRATE
  8. ISOSORBIDE MONONITRATE ER [Concomitant]
     Active Substance: ISOSORBIDE MONONITRATE
  9. METFORMIN [Concomitant]
     Active Substance: METFORMIN HYDROCHLORIDE
  10. METOPROLOL TARTRATE. [Concomitant]
     Active Substance: METOPROLOL TARTRATE
  11. MIRALAX [Concomitant]
     Active Substance: POLYETHYLENE GLYCOL 3350
  12. RANITIDINE. [Concomitant]
     Active Substance: RANITIDINE
  13. NITROSTAT [Concomitant]
     Active Substance: NITROGLYCERIN
  14. RANITIDINE. [Concomitant]
     Active Substance: RANITIDINE
  15. MELATONIN [Concomitant]
     Active Substance: MELATONIN
  16. MIRALAX [Concomitant]
     Active Substance: POLYETHYLENE GLYCOL 3350
  17. MELATONIN [Concomitant]
     Active Substance: MELATONIN
  18. BACLOFEN. [Concomitant]
     Active Substance: BACLOFEN
  19. KLONOPIN [Concomitant]
     Active Substance: CLONAZEPAM
  20. FIORICET [Concomitant]
     Active Substance: ACETAMINOPHEN\BUTALBITAL\CAFFEINE
  21. HORIZANT [Concomitant]
     Active Substance: GABAPENTIN ENACARBIL
  22. LISINOPRIL. [Concomitant]
     Active Substance: LISINOPRIL
  23. 81MG ASPIRIN [Concomitant]
  24. LISINOPRIL TAB 10MG OPTUMRX DR. JOVANNA MORRISON [Concomitant]
     Active Substance: LISINOPRIL
     Indication: HYPERTENSION
     Dosage: ?          QUANTITY:10 MG/MG - MILLIGRAMS/MILLIGRAMS;?
     Route: 048
     Dates: start: 20081115, end: 20181104
  25. METFORMIN [Concomitant]
     Active Substance: METFORMIN HYDROCHLORIDE
  26. PRAVASTATIN SODIUM. [Concomitant]
     Active Substance: PRAVASTATIN SODIUM
  27. NITROSTAT [Concomitant]
     Active Substance: NITROGLYCERIN
  28. 81 MG ASPIRIN [Concomitant]
     Active Substance: ASPIRIN
  29. METOPROLOL TARTRATE TABLET [Suspect]
     Active Substance: METOPROLOL TARTRATE
     Dosage: ?          QUANTITY:25 MG MILLIGRAM(S);?
     Route: 048
     Dates: start: 20101104, end: 20181104
  30. PLAVIX [Concomitant]
     Active Substance: CLOPIDOGREL BISULFATE
  31. SYSTANE (HYPROMELLOSE 2910 (4000 MPA.S)) [Concomitant]
     Active Substance: HYPROMELLOSE 2910 (4000 MPA.S)
  32. SYSTANE (HYPROMELLOSE 2910 (4000 MPA.S)) [Concomitant]
     Active Substance: HYPROMELLOSE 2910 (4000 MPA.S)
  33. ROLAIDS [Concomitant]
     Active Substance: CALCIUM CARBONATE\MAGNESIUM HYDROXIDE

REACTIONS (1)
  - Product appearance confusion [None]

NARRATIVE: CASE EVENT DATE: 20181104
